FAERS Safety Report 7573887-1 (Version None)
Quarter: 2011Q2

REPORT INFORMATION
  Report Type: 
  Country: None (occurrence: None)
  Receive Date: 20110627
  Receipt Date: 20110607
  Transmission Date: 20111010
  Serious: Yes (Congenital Anomaly)
  Sender: FDA-Public Use
  Company Number: A0932969A

PATIENT
  Sex: Female

DRUGS (4)
  1. SYNTHROID [Concomitant]
     Route: 064
  2. INSULIN [Concomitant]
  3. PRENATAL VITAMINS [Concomitant]
     Route: 064
  4. PAXIL [Suspect]
     Indication: DEPRESSION
     Dosage: 30MG PER DAY
     Route: 064

REACTIONS (2)
  - DRUG EXPOSURE DURING PREGNANCY [None]
  - VENTRICULAR SEPTAL DEFECT [None]
